FAERS Safety Report 8699368 (Version 3)
Quarter: 2013Q3

REPORT INFORMATION
  Report Type: Spontaneous
  Country: US (occurrence: US)
  Receive Date: 20120802
  Receipt Date: 20130705
  Transmission Date: 20140515
  Serious: Yes (Hospitalization)
  Sender: FDA-Public Use
  Company Number: US-UCBSA-062662

PATIENT
  Age: 53 Year
  Sex: Female
  Weight: 79.3 kg

DRUGS (1)
  1. CIMZIA [Suspect]
     Indication: CROHN^S DISEASE
     Dates: start: 200903

REACTIONS (8)
  - Atrial fibrillation [Unknown]
  - Intestinal obstruction [Recovered/Resolved]
  - Amnesia [Not Recovered/Not Resolved]
  - Oropharyngeal pain [Unknown]
  - Influenza like illness [Unknown]
  - Cough [Unknown]
  - Malaise [Unknown]
  - Sinusitis [Unknown]
